FAERS Safety Report 10412669 (Version 1)
Quarter: 2014Q3

REPORT INFORMATION
  Report Type: Spontaneous
  Country: CH (occurrence: CH)
  Receive Date: 20140827
  Receipt Date: 20140827
  Transmission Date: 20150326
  Serious: Yes (Other)
  Sender: FDA-Public Use
  Company Number: CH-ACTAVIS-2014-18514

PATIENT
  Age: 69 Year
  Sex: Female

DRUGS (7)
  1. ENATEC [Concomitant]
     Active Substance: ENALAPRIL MALEATE
     Indication: HYPERKINETIC HEART SYNDROME
  2. ASPIRIN CARDIO [Concomitant]
     Active Substance: ASPIRIN
     Indication: HYPERKINETIC HEART SYNDROME
  3. ANTABUSE [Suspect]
     Active Substance: DISULFIRAM
     Indication: ALCOHOL ABUSE
     Dosage: UNK
     Route: 048
     Dates: start: 201309, end: 20140322
  4. BILOL [Concomitant]
     Active Substance: BISOPROLOL
     Indication: HYPERKINETIC HEART SYNDROME
  5. BILOL [Concomitant]
     Active Substance: BISOPROLOL
     Indication: HYPERTENSION
     Dosage: 5 MG UNK FREQ.
     Route: 065
  6. ENATEC [Concomitant]
     Active Substance: ENALAPRIL MALEATE
     Indication: HYPERTENSION
     Dosage: 10 MG, DAILY
     Route: 065
  7. ASPIRIN CARDIO [Concomitant]
     Active Substance: ASPIRIN
     Indication: HYPERTENSION
     Dosage: 100 MG, DAILY
     Route: 065

REACTIONS (4)
  - Monoparesis [Recovering/Resolving]
  - Drug ineffective [Recovering/Resolving]
  - Trismus [Recovering/Resolving]
  - Paraesthesia [Recovering/Resolving]

NARRATIVE: CASE EVENT DATE: 201403
